FAERS Safety Report 5076976-9 (Version None)
Quarter: 2006Q3

REPORT INFORMATION
  Report Type: 
  Country: None (occurrence: None)
  Receive Date: 20060810
  Receipt Date: 20060721
  Transmission Date: 20061208
  Serious: Yes (Other)
  Sender: FDA-Public Use
  Company Number: JP-JPN-A200602757

PATIENT
  Sex: Male

DRUGS (36)
  1. ZEFIX [Suspect]
     Indication: DRUG USE FOR UNKNOWN INDICATION
     Dosage: 100MG PER DAY
     Route: 048
     Dates: start: 20060523
  2. CISPLATIN [Concomitant]
     Route: 042
  3. LASIX [Concomitant]
  4. ALDACTONE [Concomitant]
  5. ALLOPURINOL [Concomitant]
     Dosage: 100MG PER DAY
     Route: 048
  6. KAYEXALATE [Concomitant]
     Dosage: 15G PER DAY
     Route: 048
  7. MUCOSTA [Concomitant]
     Route: 048
  8. BACLOFEN [Concomitant]
     Route: 048
  9. KAYTWO N [Concomitant]
     Route: 042
  10. SODIUM [Concomitant]
     Route: 042
  11. CELESTONE [Concomitant]
     Route: 042
  12. SOLDEM [Concomitant]
     Route: 042
  13. CYTOTEC [Concomitant]
     Route: 048
  14. SODIUM CHLORIDE [Concomitant]
  15. UNKNOWN NAME [Concomitant]
     Route: 042
  16. GASTER [Concomitant]
     Route: 042
  17. TRANSAMIN [Concomitant]
     Route: 042
  18. ADONA (AC-17) [Concomitant]
  19. MORIHEPAMINE [Concomitant]
     Route: 042
  20. SOLDEM 3A [Concomitant]
     Route: 042
  21. UNKNOWN NAME [Concomitant]
     Route: 048
  22. URSO [Concomitant]
     Dosage: 300MG PER DAY
     Route: 048
  23. GASTER D [Concomitant]
     Dosage: 10MG PER DAY
     Route: 048
  24. UNKNOWN NAME [Concomitant]
     Route: 042
  25. SOLDEM 3A [Concomitant]
     Route: 042
  26. CEFAZOLIN SODIUM [Concomitant]
     Route: 042
  27. UNKNOWN NAME [Concomitant]
     Route: 042
  28. HEPARIN-LOCK [Concomitant]
     Route: 042
  29. FLUOROURACIL [Concomitant]
     Route: 042
  30. LIVACT [Concomitant]
     Dosage: 12.45G PER DAY
     Route: 048
  31. CEFZON [Concomitant]
     Dosage: 300MG PER DAY
     Route: 048
  32. UNKNOWN NAME [Concomitant]
     Route: 042
  33. ALBUMIN [Concomitant]
     Route: 042
  34. BROCIN CODEINE [Concomitant]
     Dosage: 30MG PER DAY
     Route: 048
  35. KENALOG [Concomitant]
     Route: 061
  36. LOXONIN [Concomitant]

REACTIONS (17)
  - ALANINE AMINOTRANSFERASE INCREASED [None]
  - ASPARTATE AMINOTRANSFERASE INCREASED [None]
  - BLOOD ALKALINE PHOSPHATASE INCREASED [None]
  - BLOOD BILIRUBIN INCREASED [None]
  - BLOOD CREATININE INCREASED [None]
  - BLOOD LACTATE DEHYDROGENASE INCREASED [None]
  - BLOOD POTASSIUM INCREASED [None]
  - BLOOD UREA INCREASED [None]
  - GAMMA-GLUTAMYLTRANSFERASE INCREASED [None]
  - HAEMATOCRIT DECREASED [None]
  - HAEMOGLOBIN DECREASED [None]
  - MEAN CELL HAEMOGLOBIN INCREASED [None]
  - MEAN CELL VOLUME INCREASED [None]
  - PLATELET COUNT DECREASED [None]
  - RED BLOOD CELL COUNT DECREASED [None]
  - RENAL IMPAIRMENT [None]
  - WHITE BLOOD CELL COUNT INCREASED [None]
